FAERS Safety Report 22758167 (Version 3)
Quarter: 2023Q4

REPORT INFORMATION
  Report Type: Report from Study
  Country: PL (occurrence: PL)
  Receive Date: 20230727
  Receipt Date: 20231006
  Transmission Date: 20240109
  Serious: Yes (Hospitalization)
  Sender: FDA-Public Use
  Company Number: PL-JNJFOC-20230758879

PATIENT
  Age: 70 Year
  Sex: Female

DRUGS (20)
  1. TECLISTAMAB [Suspect]
     Active Substance: TECLISTAMAB
     Indication: Plasma cell myeloma
     Route: 058
     Dates: start: 20220909, end: 20220912
  2. TECLISTAMAB [Suspect]
     Active Substance: TECLISTAMAB
     Route: 058
     Dates: start: 20220916, end: 20230518
  3. DARATUMUMAB [Suspect]
     Active Substance: DARATUMUMAB
     Indication: Plasma cell myeloma
     Route: 058
     Dates: start: 20220908, end: 20230518
  4. BILAGRA [Concomitant]
     Indication: Hypersensitivity
     Dosage: 1
     Route: 048
     Dates: start: 20220812
  5. DICLOFENAC [Concomitant]
     Active Substance: DICLOFENAC
     Indication: Arthralgia
     Route: 050
     Dates: start: 20220922
  6. ALLOPURINOL [Concomitant]
     Active Substance: ALLOPURINOL
     Indication: Acute sinusitis
     Dates: start: 20221206
  7. NALTREXONE [Concomitant]
     Active Substance: NALTREXONE
     Indication: Acute sinusitis
     Dates: start: 20221206
  8. CLATRA [Concomitant]
     Indication: Acute sinusitis
     Dates: start: 20221206
  9. BROMHEXINI HYDROCHLORIDUM [Concomitant]
     Indication: Acute sinusitis
     Dates: start: 20221206
  10. ESOMEPRAZOLUM [Concomitant]
     Indication: Acute sinusitis
     Dates: start: 20221206
  11. ACETAMINOPHEN [Concomitant]
     Active Substance: ACETAMINOPHEN
     Indication: Acute sinusitis
     Dates: start: 20221206
  12. SIMVASTATIN [Concomitant]
     Active Substance: SIMVASTATIN
     Indication: Acute sinusitis
     Dates: start: 20221206
  13. SIMVASTATIN [Concomitant]
     Active Substance: SIMVASTATIN
     Indication: Blood cholesterol increased
     Dosage: 10
     Route: 048
  14. BUDESONIDE [Concomitant]
     Active Substance: BUDESONIDE
     Indication: Cough
     Route: 055
     Dates: start: 20230506
  15. DEXAMETHASONE [Concomitant]
     Active Substance: DEXAMETHASONE
     Indication: Acute sinusitis
  16. IVABRADINE [Concomitant]
     Active Substance: IVABRADINE
     Indication: Bundle branch block left
     Dosage: 2.5
     Route: 048
  17. OMEPRAZOLE [Concomitant]
     Active Substance: OMEPRAZOLE
     Indication: Prophylaxis
     Dosage: 1
     Route: 048
  18. ENTECAVIRUM [Concomitant]
     Indication: Hepatitis B reactivation
     Route: 048
     Dates: start: 20230601
  19. PREGABALIN [Concomitant]
     Active Substance: PREGABALIN
     Indication: Hyperaesthesia
     Route: 048
     Dates: start: 20230727
  20. URSODIOL [Concomitant]
     Active Substance: URSODIOL
     Indication: Hepatitis B reactivation
     Dosage: 250
     Route: 048
     Dates: start: 20230519

REACTIONS (1)
  - Herpes zoster [Recovered/Resolved]

NARRATIVE: CASE EVENT DATE: 20230718
